FAERS Safety Report 8618498 (Version 3)
Quarter: 2014Q1

REPORT INFORMATION
  Report Type: Spontaneous
  Country: US (occurrence: US)
  Receive Date: 20120618
  Receipt Date: 20140107
  Transmission Date: 20141002
  Serious: Yes (Hospitalization, Disabling, Other)
  Sender: FDA-Public Use
  Company Number: US-ASTRAZENECA-2012SE36038

PATIENT
  Age: 18063 Day
  Sex: Male
  Weight: 86.2 kg

DRUGS (14)
  1. NEXIUM [Suspect]
     Indication: GASTROOESOPHAGEAL REFLUX DISEASE
     Route: 048
     Dates: start: 200202, end: 201211
  2. NEXIUM [Suspect]
     Indication: BARRETT^S OESOPHAGUS
     Route: 048
     Dates: start: 200202, end: 201211
  3. NEXIUM [Suspect]
     Indication: DYSPEPSIA
     Route: 048
     Dates: start: 200202, end: 201211
  4. NEXIUM [Suspect]
     Indication: GASTROOESOPHAGEAL REFLUX DISEASE
     Route: 048
     Dates: start: 20020215, end: 201211
  5. NEXIUM [Suspect]
     Indication: BARRETT^S OESOPHAGUS
     Route: 048
     Dates: start: 20020215, end: 201211
  6. NEXIUM [Suspect]
     Indication: DYSPEPSIA
     Route: 048
     Dates: start: 20020215, end: 201211
  7. NEXIUM [Suspect]
     Indication: GASTROOESOPHAGEAL REFLUX DISEASE
     Route: 048
     Dates: start: 20061118
  8. NEXIUM [Suspect]
     Indication: BARRETT^S OESOPHAGUS
     Route: 048
     Dates: start: 20061118
  9. NEXIUM [Suspect]
     Indication: DYSPEPSIA
     Route: 048
     Dates: start: 20061118
  10. PRILOSEC [Suspect]
     Route: 048
  11. PRILOSEC [Suspect]
     Route: 048
     Dates: start: 20081017
  12. PROTONIX [Concomitant]
     Route: 048
     Dates: start: 20061103
  13. DEXILANT [Concomitant]
  14. ZEGERID [Concomitant]
     Route: 048
     Dates: start: 20061103

REACTIONS (11)
  - Oesophageal disorder [Unknown]
  - Neoplasm malignant [Unknown]
  - Bone density decreased [Unknown]
  - Osteoporosis [Unknown]
  - Foot fracture [Unknown]
  - Osteogenesis imperfecta [Unknown]
  - Ankle fracture [Unknown]
  - Rheumatoid arthritis [Unknown]
  - Abdominal pain lower [Unknown]
  - Bone disorder [Unknown]
  - Depression [Unknown]
